FAERS Safety Report 20483764 (Version 1)
Quarter: 2022Q1

REPORT INFORMATION
  Report Type: Spontaneous
  Country: US (occurrence: US)
  Receive Date: 20220217
  Receipt Date: 20220217
  Transmission Date: 20220423
  Serious: No
  Sender: FDA-Public Use
  Company Number: US-MYLANLABS-2022M1006057

PATIENT
  Age: 37 Year
  Sex: Female
  Weight: 49.8 kg

DRUGS (1)
  1. XULANE [Suspect]
     Active Substance: ETHINYL ESTRADIOL\NORELGESTROMIN
     Indication: Contraception
     Dosage: 150/35 MCG PER DAY
     Route: 062
     Dates: start: 20220116

REACTIONS (3)
  - Product adhesion issue [Recovering/Resolving]
  - Off label use [Unknown]
  - Product quality issue [Recovering/Resolving]

NARRATIVE: CASE EVENT DATE: 20220116
